FAERS Safety Report 4923713-1 (Version None)
Quarter: 2006Q1

REPORT INFORMATION
  Report Type: 
  Country: None (occurrence: None)
  Receive Date: 20060227
  Receipt Date: 20060213
  Transmission Date: 20060701
  Serious: Yes (Death, Other)
  Sender: FDA-Public Use
  Company Number: US-MERCK-0602USA04320

PATIENT
  Age: 57 Year
  Sex: Male
  Weight: 109 kg

DRUGS (11)
  1. VIOXX [Suspect]
     Indication: ARTHRITIS
     Route: 048
     Dates: start: 20010301, end: 20031011
  2. VIOXX [Suspect]
     Indication: ARTHRALGIA
     Route: 048
     Dates: start: 20010301, end: 20031011
  3. MOTRIN [Concomitant]
     Route: 048
  4. TOPROL-XL [Concomitant]
     Route: 065
  5. COZAAR [Concomitant]
     Route: 048
  6. FUROSEMIDE [Concomitant]
     Route: 065
  7. SUSTIVA [Concomitant]
     Route: 065
  8. [THERAPY UNSPECIFIED] [Concomitant]
     Route: 065
  9. ZERIT [Concomitant]
     Route: 065
  10. NORVASC [Concomitant]
     Route: 065
  11. LIPITOR [Concomitant]
     Route: 065

REACTIONS (12)
  - ABNORMAL DREAMS [None]
  - ANAEMIA [None]
  - ARRHYTHMIA [None]
  - ARTERIOSCLEROSIS [None]
  - ATRIAL FIBRILLATION [None]
  - CARDIAC ARREST [None]
  - CARDIO-RESPIRATORY ARREST [None]
  - CONVULSION [None]
  - ELECTROLYTE IMBALANCE [None]
  - HYPERTENSION [None]
  - OEDEMA [None]
  - SKIN ULCER [None]
